FAERS Safety Report 8800489 (Version 2)
Quarter: 2013Q1

REPORT INFORMATION
  Report Type: Report from Study
  Country: JP (occurrence: JP)
  Receive Date: 20120921
  Receipt Date: 20130111
  Transmission Date: 20140127
  Serious: Yes (Other)
  Sender: FDA-Public Use
  Company Number: JP-VERTEX PHARMACEUTICAL INC.-AE-2012-011119

PATIENT
  Age: 60 Year
  Sex: Male

DRUGS (27)
  1. VX-950 (TELAPREVIR) [Suspect]
     Indication: CHRONIC HEPATITIS C
     Dosage: 2250 MG, QD
     Route: 048
     Dates: start: 20120321, end: 20120424
  2. VX-950 (TELAPREVIR) [Suspect]
     Dosage: 1500 MG, QD
     Route: 048
     Dates: start: 20120425, end: 20120612
  3. REBETOL [Suspect]
     Indication: CHRONIC HEPATITIS C
     Dosage: 800 MG, QD
     Route: 048
     Dates: start: 20120321, end: 20120331
  4. REBETOL [Suspect]
     Dosage: 400 MG, QD
     Route: 048
     Dates: start: 20120401, end: 20120424
  5. REBETOL [Suspect]
     Dosage: 200 MG, QD
     Route: 048
     Dates: start: 20120425, end: 20120612
  6. REBETOL [Suspect]
     Dosage: 400 MG, QD
     Route: 048
     Dates: start: 20120613, end: 20120829
  7. PEGINTERFERON ALFA-2B [Suspect]
     Indication: CHRONIC HEPATITIS C
     Dosage: 1.5 UNK, UNK
     Route: 058
     Dates: start: 20120321, end: 20120829
  8. GLYCYRON [Concomitant]
     Route: 048
     Dates: end: 20120502
  9. LANSOPRAZOLE [Concomitant]
     Route: 048
     Dates: end: 20120401
  10. NEUOMIL [Concomitant]
     Route: 048
     Dates: end: 20120425
  11. BIBITTOACE [Concomitant]
     Route: 048
     Dates: end: 20120410
  12. KOTAROMA [Concomitant]
     Route: 048
  13. GASMOTIN [Concomitant]
     Route: 048
  14. MESITAT [Concomitant]
     Route: 048
  15. HARNAL [Concomitant]
     Route: 048
     Dates: start: 20120322
  16. BASACOLIN [Concomitant]
     Route: 048
     Dates: start: 20120322
  17. NAIXAN [Concomitant]
     Route: 048
     Dates: start: 20120323, end: 20120325
  18. NAIXAN [Concomitant]
     Route: 048
     Dates: start: 20120326
  19. PURSENNID [Concomitant]
     Route: 048
     Dates: start: 20120328, end: 20120401
  20. TAKEPRON [Concomitant]
     Route: 048
     Dates: start: 20120402
  21. LULICON [Concomitant]
     Route: 061
     Dates: start: 20120404, end: 20120404
  22. ROHYPNOL [Concomitant]
     Route: 048
     Dates: start: 20120411
  23. LUDIOMIL [Concomitant]
     Route: 048
     Dates: start: 20120426
  24. URSO [Concomitant]
     Route: 048
     Dates: start: 20120502
  25. LOXONIN [Concomitant]
     Dosage: 60 MG, QD
     Route: 048
     Dates: start: 20120627
  26. TRYPTANOL                          /00002202/ [Concomitant]
     Dosage: UNK
     Route: 048
     Dates: start: 20120725
  27. ROZEREM [Concomitant]
     Dosage: 8 MG, QD
     Route: 048
     Dates: start: 20120725, end: 20120823

REACTIONS (2)
  - Neutrophil count decreased [Recovered/Resolved]
  - White blood cell count decreased [Recovered/Resolved]
